FAERS Safety Report 6122282-0 (Version None)
Quarter: 2009Q1

REPORT INFORMATION
  Report Type: 
  Country: None (occurrence: None)
  Receive Date: 20090318
  Receipt Date: 20090310
  Transmission Date: 20090719
  Serious: Yes (Other)
  Sender: FDA-Public Use
  Company Number: DE-ALLERGAN-0903321US

PATIENT
  Sex: Male

DRUGS (3)
  1. BOTOX [Suspect]
     Indication: PAIN
     Dosage: 100 UNITS, SINGLE
     Route: 030
     Dates: start: 20030101, end: 20030101
  2. BOTOX [Suspect]
     Dosage: 100 UNITS, SINGLE
     Route: 030
  3. BOTOX [Suspect]
     Dosage: 100 UNITS, SINGLE
     Route: 030

REACTIONS (2)
  - DIZZINESS [None]
  - MUSCULAR WEAKNESS [None]
